FAERS Safety Report 6286442-0 (Version None)
Quarter: 2009Q3

REPORT INFORMATION
  Report Type: 
  Country: None (occurrence: None)
  Receive Date: 20090728
  Receipt Date: 20090720
  Transmission Date: 20100115
  Serious: Yes (Hospitalization)
  Sender: FDA-Public Use
  Company Number: A0789101A

PATIENT
  Age: 71 Year
  Sex: Female

DRUGS (3)
  1. ADVAIR HFA [Suspect]
     Dosage: 1PUFF TWICE PER DAY
     Route: 055
     Dates: start: 20090523, end: 20090526
  2. INSULIN [Concomitant]
  3. PERCOCET [Concomitant]

REACTIONS (10)
  - BLINDNESS [None]
  - EPISTAXIS [None]
  - HAEMOPTYSIS [None]
  - HYPERSENSITIVITY [None]
  - LUNG DISORDER [None]
  - PHARYNGEAL DISORDER [None]
  - SCAB [None]
  - SKIN DISORDER [None]
  - TONGUE EXFOLIATION [None]
  - WOUND SECRETION [None]
